FAERS Safety Report 22324672 (Version 2)
Quarter: 2023Q2

REPORT INFORMATION
  Report Type: Spontaneous
  Country: ES (occurrence: ES)
  Receive Date: 20230516
  Receipt Date: 20230607
  Transmission Date: 20230721
  Serious: Yes (Other)
  Sender: FDA-Public Use
  Company Number: ES-AMGEN-ESPSP2023081929

PATIENT
  Age: 73 Year
  Sex: Female

DRUGS (3)
  1. PROLIA [Suspect]
     Active Substance: DENOSUMAB
     Indication: Spinal fracture
     Dosage: UNK
     Route: 065
     Dates: start: 2017
  2. Sondelbay [Concomitant]
  3. CALCIFEDIOL [Concomitant]
     Active Substance: CALCIFEDIOL

REACTIONS (6)
  - Lumbar vertebral fracture [Unknown]
  - Thoracic vertebral fracture [Unknown]
  - Myocardial infarction [Unknown]
  - Gallbladder operation [Unknown]
  - Bone density decreased [Unknown]
  - Off label use [Unknown]

NARRATIVE: CASE EVENT DATE: 20170101
